FAERS Safety Report 6676859-4 (Version None)
Quarter: 2010Q2

REPORT INFORMATION
  Report Type: 
  Country: None (occurrence: None)
  Receive Date: 20100408
  Receipt Date: 20100408
  Transmission Date: 20101027
  Serious: No
  Sender: FDA-Public Use
  Company Number: None

PATIENT
  Age: 58 Year
  Sex: Female
  Weight: 70.3075 kg

DRUGS (1)
  1. ZICAM COLD REMEDY ZICAM LLC MATRIXX [Suspect]
     Indication: NASOPHARYNGITIS
     Dosage: ONE PUMP TO EACH NOSTRIL ONCE EVERY 4 HRS. NASAL
     Route: 045
     Dates: start: 20090301, end: 20090303

REACTIONS (2)
  - AGEUSIA [None]
  - ANOSMIA [None]
